FAERS Safety Report 26141480 (Version 1)
Quarter: 2025Q4

REPORT INFORMATION
  Report Type: Spontaneous
  Country: US (occurrence: None)
  Receive Date: 20251210
  Receipt Date: 20251210
  Transmission Date: 20260118
  Serious: No
  Sender: FDA-CTU
  Company Number: None

PATIENT
  Age: 54 Year
  Sex: Male

DRUGS (1)
  1. DAPTOMYCIN [Suspect]
     Active Substance: DAPTOMYCIN
     Indication: Osteomyelitis
     Dosage: FREQUENCY : DAILY;
     Route: 042
     Dates: start: 20250731, end: 20250810

REACTIONS (3)
  - Eosinophilic pneumonia [None]
  - Pruritus [None]
  - Pulmonary oedema [None]

NARRATIVE: CASE EVENT DATE: 20250810
